FAERS Safety Report 12616897 (Version 2)
Quarter: 2016Q3

REPORT INFORMATION
  Report Type: Spontaneous
  Country: US (occurrence: US)
  Receive Date: 20160802
  Receipt Date: 20160803
  Transmission Date: 20161109
  Serious: Yes (Life-Threatening, Hospitalization, Other)
  Sender: FDA-Public Use
  Company Number: US-JNJFOC-20160720136

PATIENT
  Age: 36 Year
  Sex: Female
  Weight: 68 kg

DRUGS (7)
  1. TYLENOL SINUS [Suspect]
     Active Substance: ACETAMINOPHEN\DIPHENHYDRAMINE
     Route: 065
  2. ERYTHROMYCIN. [Concomitant]
     Active Substance: ERYTHROMYCIN
     Indication: PRODUCT USED FOR UNKNOWN INDICATION
     Route: 065
     Dates: end: 19990914
  3. TYLENOL SINUS [Suspect]
     Active Substance: ACETAMINOPHEN\DIPHENHYDRAMINE
     Indication: PRODUCT USED FOR UNKNOWN INDICATION
     Dosage: TOTAL DOSE (MG)/DAY: 10400
     Route: 065
     Dates: end: 19990915
  4. VICODIN [Suspect]
     Active Substance: ACETAMINOPHEN\HYDROCODONE BITARTRATE
     Indication: PRODUCT USED FOR UNKNOWN INDICATION
     Dosage: TOTAL DOSE (MG)/DAY: 4000
     Route: 065
     Dates: end: 19990916
  5. BACTRIM DS [Concomitant]
     Active Substance: SULFAMETHOXAZOLE\TRIMETHOPRIM
     Indication: PRODUCT USED FOR UNKNOWN INDICATION
     Route: 065
     Dates: end: 19990915
  6. PAXIL [Concomitant]
     Active Substance: PAROXETINE HYDROCHLORIDE
     Indication: PRODUCT USED FOR UNKNOWN INDICATION
     Dosage: TOTAL DOSE (MG)/DAY: 20
     Route: 065
     Dates: end: 19990916
  7. PRILOSEC [Concomitant]
     Active Substance: OMEPRAZOLE MAGNESIUM
     Indication: PRODUCT USED FOR UNKNOWN INDICATION
     Dosage: TOTAL DOSE (MG)/DAY: 20
     Route: 065
     Dates: end: 19990916

REACTIONS (5)
  - Arrhythmia [Recovered/Resolved]
  - Blood creatinine increased [Not Recovered/Not Resolved]
  - Acute hepatic failure [Recovering/Resolving]
  - Drug administration error [Recovering/Resolving]
  - Overdose [Recovering/Resolving]

NARRATIVE: CASE EVENT DATE: 199909
